FAERS Safety Report 26067750 (Version 1)
Quarter: 2025Q4

REPORT INFORMATION
  Report Type: Spontaneous
  Country: KR (occurrence: KR)
  Receive Date: 20251120
  Receipt Date: 20251120
  Transmission Date: 20260118
  Serious: Yes (Other)
  Sender: ASTELLAS
  Company Number: KR-ASTELLAS-2025-AER-063612

PATIENT
  Sex: Male

DRUGS (1)
  1. XTANDI [Suspect]
     Active Substance: ENZALUTAMIDE
     Indication: Chemotherapy
     Dosage: SOFT CAPSULE
     Route: 065
     Dates: start: 20250520, end: 20250623

REACTIONS (1)
  - Platelet count decreased [Recovered/Resolved]

NARRATIVE: CASE EVENT DATE: 20250624
